FAERS Safety Report 8924834 (Version 1)
Quarter: 2012Q4

REPORT INFORMATION
  Report Type: 
  Country: US (occurrence: US)
  Receive Date: 20121126
  Receipt Date: 20121126
  Transmission Date: 20130627
  Serious: Yes (Death, Other)
  Sender: FDA-Public Use
  Company Number: US-FRI-1000040380

PATIENT
  Age: 28 Year
  Sex: Male
  Weight: 86.6 kg

DRUGS (1)
  1. VIIBRYD [Suspect]
     Indication: DEPRESSION
     Dates: start: 20120701, end: 20120719

REACTIONS (4)
  - Toxicity to various agents [Fatal]
  - Convulsion [Unknown]
  - Confusional state [Unknown]
  - Malaise [Unknown]
